FAERS Safety Report 10204078 (Version 1)
Quarter: 2014Q2

REPORT INFORMATION
  Report Type: Spontaneous
  Country: EG (occurrence: None)
  Receive Date: 20140523
  Receipt Date: 20140523
  Transmission Date: 20141212
  Serious: Yes (Death)
  Sender: FDA-Public Use
  Company Number: 2014-EG-006103

PATIENT
  Sex: 0

DRUGS (6)
  1. ASPARAGINASE [Suspect]
     Indication: B PRECURSOR TYPE ACUTE LEUKAEMIA
     Route: 030
  2. VINCRISTINE [Concomitant]
  3. PREDNISONE [Concomitant]
  4. DAUNOMYCIN [Concomitant]
  5. ARA-C [Concomitant]
  6. METHOTREXATE [Concomitant]

REACTIONS (1)
  - Sepsis [None]
